FAERS Safety Report 9473702 (Version 4)
Quarter: 2014Q1

REPORT INFORMATION
  Report Type: Spontaneous
  Country: US (occurrence: US)
  Receive Date: 20130823
  Receipt Date: 20140324
  Transmission Date: 20141002
  Serious: Yes (Hospitalization, Disabling, Other)
  Sender: FDA-Public Use
  Company Number: US-009507513-2010SP002792

PATIENT
  Sex: Female
  Weight: 72.58 kg

DRUGS (4)
  1. NUVARING [Suspect]
     Indication: CONTRACEPTION
     Dates: start: 2006, end: 200805
  2. TOPAMAX [Suspect]
     Indication: MIGRAINE
     Dates: end: 200608
  3. CORTICOSTEROIDS (UNSPECIFIED) [Concomitant]
     Indication: EAR INFECTION
  4. VITAMINS (UNSPECIFIED) [Concomitant]
     Dosage: UNK UNK, QD

REACTIONS (47)
  - Blindness [Unknown]
  - Subarachnoid haemorrhage [Recovering/Resolving]
  - Intracranial venous sinus thrombosis [Recovering/Resolving]
  - Mental status changes [Not Recovered/Not Resolved]
  - Ear infection [Unknown]
  - Panic attack [Not Recovered/Not Resolved]
  - Anxiety [Recovering/Resolving]
  - Anger [Recovering/Resolving]
  - Application site folliculitis [Unknown]
  - Protein S deficiency [Unknown]
  - Claustrophobia [Unknown]
  - Pharyngitis [Unknown]
  - Road traffic accident [Unknown]
  - Muscle strain [Unknown]
  - Dehydration [Unknown]
  - Bronchitis [Unknown]
  - Vaccination site reaction [Unknown]
  - Upper respiratory tract infection [Unknown]
  - Back pain [Unknown]
  - Hypersensitivity [Unknown]
  - Weight increased [Unknown]
  - Migraine [Unknown]
  - Depression [Recovered/Resolved]
  - Vaginal discharge [Unknown]
  - Abdominal pain [Recovered/Resolved]
  - Dizziness [Unknown]
  - Tension headache [Recovering/Resolving]
  - Pulmonary embolism [Unknown]
  - Essential hypertension [Recovered/Resolved]
  - Insomnia [Recovering/Resolving]
  - Musculoskeletal pain [Unknown]
  - Maternal exposure before pregnancy [Unknown]
  - Ovarian cyst [Unknown]
  - Pelvic pain [Unknown]
  - Haematuria [Unknown]
  - Proteinuria [Unknown]
  - Urinary tract infection [Unknown]
  - Thrombophlebitis superficial [Unknown]
  - Dizziness [Unknown]
  - Cough [Unknown]
  - Vomiting [Unknown]
  - Bipolar disorder [Recovering/Resolving]
  - Vaginal infection [Unknown]
  - Otitis externa [Unknown]
  - Headache [Unknown]
  - Dizziness [Unknown]
  - Leukocytosis [Unknown]
